FAERS Safety Report 8762456 (Version 2)
Quarter: 2012Q4

REPORT INFORMATION
  Report Type: 
  Country: US (occurrence: US)
  Receive Date: 20120830
  Receipt Date: 20120830
  Transmission Date: 20130627
  Serious: Yes (Hospitalization, Other)
  Sender: FDA-Public Use
  Company Number: US-009507513-2012SP024809

PATIENT

DRUGS (1)
  1. NUVARING [Suspect]
     Indication: CONTRACEPTION
     Dosage: UNK
     Dates: start: 20060119, end: 200605

REACTIONS (10)
  - Vaginitis bacterial [Unknown]
  - Pulmonary embolism [Unknown]
  - Uterine haemorrhage [Unknown]
  - Non-cardiac chest pain [Unknown]
  - Back pain [Unknown]
  - Abdominal pain [Unknown]
  - Urinary tract infection [Unknown]
  - Road traffic accident [Unknown]
  - Cervical cyst [Unknown]
  - Muscle spasms [Recovered/Resolved]
